FAERS Safety Report 4364860-5 (Version None)
Quarter: 2004Q2

REPORT INFORMATION
  Report Type: 
  Country: None (occurrence: None)
  Receive Date: 20040521
  Receipt Date: 20040430
  Transmission Date: 20050107
  Serious: Yes (Death)
  Sender: FDA-Public Use
  Company Number: USA040466321

PATIENT
  Age: 51 Year
  Sex: Male
  Weight: 72 kg

DRUGS (8)
  1. XIGRIS [Suspect]
     Indication: SEPSIS
  2. STEROIDS [Concomitant]
  3. DOPAMINE HCL [Concomitant]
  4. ALBUMIN (HUMAN) [Concomitant]
  5. EPINEPHRINE [Concomitant]
  6. ATROPINE [Concomitant]
  7. MUSCLE RELAXANTS [Concomitant]
  8. ANTIBIOTICS [Concomitant]

REACTIONS (1)
  - DEATH [None]
